FAERS Safety Report 15660298 (Version 1)
Quarter: 2018Q4

REPORT INFORMATION
  Report Type: Spontaneous
  Country: FR (occurrence: FR)
  Receive Date: 20181127
  Receipt Date: 20181127
  Transmission Date: 20190205
  Serious: Yes (Hospitalization)
  Sender: FDA-Public Use
  Company Number: FR-NAPPMUNDI-GBR-2018-0061843

PATIENT
  Age: 59 Year
  Sex: Male

DRUGS (7)
  1. ZYMAD [Concomitant]
     Active Substance: CHOLECALCIFEROL
  2. DUPHALAC [Concomitant]
     Active Substance: LACTULOSE
  3. OXYNORM [Suspect]
     Active Substance: OXYCODONE HYDROCHLORIDE
     Indication: ANALGESIC THERAPY
     Route: 058
     Dates: start: 20181009, end: 20181009
  4. ABSTRAL [Suspect]
     Active Substance: FENTANYL CITRATE
     Indication: ANALGESIC THERAPY
     Dosage: UNK (1 CP AVANT CHAQUE CHANGEMENT DE POSITION)
     Route: 060
     Dates: start: 20181007
  5. OXYCODONE HYDROCHLORIDE. [Suspect]
     Active Substance: OXYCODONE HYDROCHLORIDE
     Indication: ANALGESIC THERAPY
     Dosage: 1,5MG/H+2MG EN BOLUS
     Route: 041
     Dates: start: 20181006, end: 20181010
  6. CALCIPARINE [Concomitant]
     Active Substance: HEPARIN CALCIUM
  7. CALCIDOSE VITAMINE D [Concomitant]
     Active Substance: CALCIUM\CHOLECALCIFEROL

REACTIONS (6)
  - Coma [Recovered/Resolved]
  - Oxygen saturation decreased [Recovered/Resolved]
  - Tremor [Recovered/Resolved]
  - Miosis [Recovered/Resolved]
  - Vomiting [Recovered/Resolved]
  - Confusional state [Recovered/Resolved]

NARRATIVE: CASE EVENT DATE: 20181009
